FAERS Safety Report 23746463 (Version 1)
Quarter: 2024Q2

REPORT INFORMATION
  Report Type: Spontaneous
  Country: US (occurrence: US)
  Receive Date: 20240416
  Receipt Date: 20240416
  Transmission Date: 20240716
  Serious: No
  Sender: FDA-Public Use
  Company Number: US-ABBVIE-5718310

PATIENT
  Sex: Female

DRUGS (1)
  1. CREON [Suspect]
     Active Substance: PANCRELIPASE AMYLASE\PANCRELIPASE LIPASE\PANCRELIPASE PROTEASE
     Indication: Product used for unknown indication
     Route: 048

REACTIONS (10)
  - Abdominal distension [Not Recovered/Not Resolved]
  - Gastritis [Unknown]
  - Chest pain [Unknown]
  - Flatulence [Unknown]
  - Constipation [Unknown]
  - Abdominal pain [Unknown]
  - Fatigue [Unknown]
  - Hiatus hernia [Unknown]
  - Brain fog [Unknown]
  - Dyspepsia [Unknown]
